FAERS Safety Report 14536554 (Version 1)
Quarter: 2018Q1

REPORT INFORMATION
  Report Type: Spontaneous
  Country: US (occurrence: US)
  Receive Date: 20180215
  Receipt Date: 20180215
  Transmission Date: 20180509
  Serious: Yes (Hospitalization)
  Sender: FDA-Public Use
  Company Number: None

PATIENT
  Age: 69 Year
  Sex: Male
  Weight: 65.8 kg

DRUGS (12)
  1. DIGOXIN. [Suspect]
     Active Substance: DIGOXIN
     Indication: CORONARY ARTERY DISEASE
     Route: 048
  2. METATONIN [Concomitant]
  3. SPIRONOLACTONE. [Concomitant]
     Active Substance: SPIRONOLACTONE
  4. ASA [Concomitant]
     Active Substance: ASPIRIN
  5. VITAMIN D3 [Concomitant]
     Active Substance: CHOLECALCIFEROL
  6. FLONASE [Concomitant]
     Active Substance: FLUTICASONE PROPIONATE
  7. ZOCOR [Concomitant]
     Active Substance: SIMVASTATIN
  8. AMIODARONE [Concomitant]
     Active Substance: AMIODARONE
  9. COREG [Concomitant]
     Active Substance: CARVEDILOL
  10. NEURONTIN [Concomitant]
     Active Substance: GABAPENTIN
  11. ZESTRIL [Concomitant]
     Active Substance: LISINOPRIL
  12. LOFRIBA [Concomitant]

REACTIONS (6)
  - Acute kidney injury [None]
  - Toxicity to various agents [None]
  - Cardioactive drug level increased [None]
  - Transient ischaemic attack [None]
  - Therapy cessation [None]
  - Dysarthria [None]

NARRATIVE: CASE EVENT DATE: 20170715
